FAERS Safety Report 10136492 (Version 1)
Quarter: 2014Q2

REPORT INFORMATION
  Report Type: Spontaneous
  Country: US (occurrence: None)
  Receive Date: 20140425
  Receipt Date: 20140425
  Transmission Date: 20141212
  Serious: No
  Sender: FDA-Public Use
  Company Number: None

PATIENT
  Age: 32 Year
  Sex: Female
  Weight: 133.81 kg

DRUGS (1)
  1. OXYCODONE/ACETAMINOPHEN [Suspect]
     Indication: PAIN
     Dosage: 1 TABLET, AS NEEDED, TAKEN BY MOUTH
     Route: 048
     Dates: start: 20140414, end: 20140424

REACTIONS (13)
  - Drug ineffective [None]
  - Product quality issue [None]
  - Headache [None]
  - Disorientation [None]
  - Activities of daily living impaired [None]
  - Vision blurred [None]
  - Eye pain [None]
  - Dizziness [None]
  - Impaired driving ability [None]
  - Memory impairment [None]
  - Fatigue [None]
  - Pain [None]
  - Product substitution issue [None]
